FAERS Safety Report 9884268 (Version 1)
Quarter: 2014Q1

REPORT INFORMATION
  Report Type: Spontaneous
  Country: None (occurrence: US)
  Receive Date: 20140210
  Receipt Date: 20140210
  Transmission Date: 20141002
  Serious: No
  Sender: FDA-Public Use
  Company Number: US-ALLERGAN-1315808US

PATIENT
  Sex: Female

DRUGS (3)
  1. BOTOX COSMETIC [Suspect]
     Indication: SKIN WRINKLING
     Dosage: 48 UNITS, SINGLE
     Route: 030
     Dates: start: 201306, end: 201306
  2. BOTOX COSMETIC [Suspect]
     Indication: SKIN WRINKLING
  3. BOTOX COSMETIC [Suspect]
     Indication: SKIN WRINKLING

REACTIONS (4)
  - Incorrect dose administered [Unknown]
  - Facial paresis [Unknown]
  - Facial paresis [Unknown]
  - Eyelid ptosis [Unknown]
